FAERS Safety Report 20714100 (Version 9)
Quarter: 2024Q1

REPORT INFORMATION
  Report Type: Spontaneous
  Country: US (occurrence: US)
  Receive Date: 20220415
  Receipt Date: 20240108
  Transmission Date: 20240409
  Serious: Yes (Other)
  Sender: FDA-Public Use
  Company Number: US-PFIZER INC-2020042472

PATIENT
  Age: 69 Year
  Sex: Female
  Weight: 52.154 kg

DRUGS (3)
  1. CELONTIN [Suspect]
     Active Substance: METHSUXIMIDE
     Indication: Epilepsy
     Dosage: 300 MG, 3X/DAY
     Route: 048
  2. LOSARTAN [Concomitant]
     Active Substance: LOSARTAN
     Indication: Hypertension
     Dosage: UNK, 1X/DAY
  3. CELEBREX [Concomitant]
     Active Substance: CELECOXIB
     Indication: Arthritis
     Dosage: UNK, AS NEEDED

REACTIONS (1)
  - Foot operation [Unknown]
